FAERS Safety Report 4718589-1 (Version None)
Quarter: 2005Q3

REPORT INFORMATION
  Report Type: 
  Country: None (occurrence: None)
  Receive Date: 20050720
  Receipt Date: 20001130
  Transmission Date: 20060218
  Serious: Yes (Hospitalization)
  Sender: FDA-Public Use
  Company Number: US-GLAXOSMITHKLINE-A0133181A

PATIENT
  Sex: Female

DRUGS (5)
  1. LOTRONEX [Suspect]
     Indication: IRRITABLE BOWEL SYNDROME
     Dosage: 1MG ALTERNATE DAYS
     Route: 048
  2. LASIX [Concomitant]
  3. GLUCOTROL [Concomitant]
  4. ACCUPRIL [Concomitant]
     Indication: HYPERTENSION
  5. UNSPECIFIED MEDICATION [Concomitant]

REACTIONS (7)
  - ABDOMINAL PAIN UPPER [None]
  - COLECTOMY [None]
  - CONSTIPATION [None]
  - DIVERTICULITIS [None]
  - DIVERTICULUM [None]
  - MALAISE [None]
  - RECTAL TENESMUS [None]
